FAERS Safety Report 8211513-9 (Version None)
Quarter: 2012Q1

REPORT INFORMATION
  Report Type: 
  Country: None (occurrence: None)
  Receive Date: 20120315
  Receipt Date: 20120305
  Transmission Date: 20120608
  Serious: Yes (Hospitalization)
  Sender: FDA-Public Use
  Company Number: BE-BRISTOL-MYERS SQUIBB COMPANY-16421570

PATIENT
  Age: 68 Year
  Sex: Female
  Weight: 79 kg

DRUGS (4)
  1. CALCIUM CARBONATE [Concomitant]
     Dosage: 1 DF : 1000 UNITS NOS,ONE CAPSULE
     Dates: start: 20100819
  2. D-CURE [Concomitant]
     Dosage: 1 DF : 1AMP,FREQ: 1/28(PVC)
     Dates: start: 20100819
  3. OMEPRAZOLE [Concomitant]
     Dosage: MYLAN-OMEPRAZOLE,1 CAPS
     Dates: start: 20091029
  4. ORENCIA [Suspect]
     Dosage: 750MG
     Dates: start: 20100614

REACTIONS (2)
  - ACUTE MYOCARDIAL INFARCTION [None]
  - HYPOTHYROIDISM [None]
